FAERS Safety Report 4527474-X (Version None)
Quarter: 2004Q4

REPORT INFORMATION
  Report Type: 
  Country: None (occurrence: None)
  Receive Date: 20041130
  Receipt Date: 20040915
  Transmission Date: 20050328
  Serious: No
  Sender: FDA-Public Use
  Company Number: WAES 0409USA01344

PATIENT
  Sex: Female

DRUGS (3)
  1. ZETIA [Suspect]
     Indication: HYPERCHOLESTEROLAEMIA
     Dosage: 10 MG/DAILY/PO
     Route: 048
     Dates: start: 20030101
  2. LIPITOR [Concomitant]
  3. ESTROGENS (UNSPECIFIED) [Concomitant]

REACTIONS (2)
  - AMNESIA [None]
  - DIZZINESS [None]
